FAERS Safety Report 21872665 (Version 2)
Quarter: 2023Q1

REPORT INFORMATION
  Report Type: Spontaneous
  Country: JP (occurrence: JP)
  Receive Date: 20230117
  Receipt Date: 20230316
  Transmission Date: 20230418
  Serious: Yes (Hospitalization, Other)
  Sender: FDA-Public Use
  Company Number: JP-PFIZER INC-PV202300007503

PATIENT
  Age: 73 Year
  Sex: Male
  Weight: 55 kg

DRUGS (3)
  1. VIBRAMYCIN [Suspect]
     Active Substance: DOXYCYCLINE
     Indication: Scrub typhus
     Dosage: 100 MG, 2X/DAY
     Route: 048
     Dates: start: 20221209, end: 20221212
  2. SILODOSIN OD [Concomitant]
     Dosage: 4 MG
     Route: 048
  3. DUTASTERIDE AV [Concomitant]
     Dosage: 0.5 MG AV
     Route: 048

REACTIONS (1)
  - Toxic epidermal necrolysis [Recovering/Resolving]

NARRATIVE: CASE EVENT DATE: 20221213
